FAERS Safety Report 4357056-4 (Version None)
Quarter: 2004Q2

REPORT INFORMATION
  Report Type: 
  Country: None (occurrence: None)
  Receive Date: 20040512
  Receipt Date: 20040506
  Transmission Date: 20050107
  Serious: Yes (Hospitalization)
  Sender: FDA-Public Use
  Company Number: DE-GLAXOSMITHKLINE-D0043741A

PATIENT
  Sex: Male

DRUGS (2)
  1. REQUIP [Suspect]
     Indication: PARKINSON'S DISEASE
     Route: 048
     Dates: start: 20040301
  2. CABASERIL [Suspect]
     Indication: PARKINSON'S DISEASE
     Route: 048
     Dates: end: 20040301

REACTIONS (1)
  - PULMONARY FIBROSIS [None]
